FAERS Safety Report 24604679 (Version 2)
Quarter: 2024Q4

REPORT INFORMATION
  Report Type: Spontaneous
  Country: US (occurrence: US)
  Receive Date: 20241111
  Receipt Date: 20241125
  Transmission Date: 20250115
  Serious: Yes (Life-Threatening, Hospitalization)
  Sender: TEVA
  Company Number: US-TEVA-VS-3262443

PATIENT
  Age: 46 Year
  Sex: Female

DRUGS (4)
  1. PREDNISONE [Suspect]
     Active Substance: PREDNISONE
     Indication: Idiopathic angioedema
     Dosage: 30-40MG
     Route: 048
  2. AMLODIPINE [Concomitant]
     Active Substance: AMLODIPINE BESYLATE
     Indication: Hypertension
     Route: 065
  3. MONTELUKAST [Suspect]
     Active Substance: MONTELUKAST
     Indication: Idiopathic angioedema
     Route: 048
  4. FAMOTIDINE [Suspect]
     Active Substance: FAMOTIDINE
     Indication: Idiopathic angioedema
     Route: 048

REACTIONS (1)
  - Drug ineffective [Unknown]
